FAERS Safety Report 8385624 (Version 3)
Quarter: 2013Q1

REPORT INFORMATION
  Report Type: Report from Study
  Country: IT (occurrence: IT)
  Receive Date: 20120202
  Receipt Date: 20130325
  Transmission Date: 20140127
  Serious: Yes (Hospitalization)
  Sender: FDA-Public Use
  Company Number: IT-JNJFOC-20120112417

PATIENT
  Age: 40 Year
  Sex: Male
  Weight: 76 kg

DRUGS (29)
  1. PALIPERIDONE PALMITATE [Suspect]
     Indication: SCHIZOPHRENIA
     Dates: start: 20120727
  2. PALIPERIDONE PALMITATE [Suspect]
     Indication: SCHIZOPHRENIA
     Dates: start: 20111031
  3. PALIPERIDONE PALMITATE [Suspect]
     Indication: SCHIZOPHRENIA
     Dosage: KIT NUMBER 83180
     Dates: start: 20111207
  4. DIAZEPAM [Concomitant]
     Indication: TREMOR
     Route: 065
     Dates: start: 20120220
  5. DIAZEPAM [Concomitant]
     Indication: TREMOR
     Route: 065
     Dates: start: 201201, end: 201201
  6. DIAZEPAM [Concomitant]
     Indication: TREMOR
     Route: 065
     Dates: start: 20120113
  7. DIAZEPAM [Concomitant]
     Indication: TREMOR
     Route: 065
     Dates: start: 20111001, end: 20111228
  8. DIAZEPAM [Concomitant]
     Indication: TREMOR
     Route: 065
     Dates: start: 20120220, end: 20120220
  9. DIAZEPAM [Concomitant]
     Indication: ANXIETY
     Route: 065
     Dates: start: 201201, end: 201201
  10. DIAZEPAM [Concomitant]
     Indication: ANXIETY
     Route: 065
     Dates: start: 20120113
  11. DIAZEPAM [Concomitant]
     Indication: ANXIETY
     Route: 065
     Dates: start: 20111001, end: 20111228
  12. DIAZEPAM [Concomitant]
     Indication: ANXIETY
     Route: 065
     Dates: start: 20120220, end: 20120220
  13. DIAZEPAM [Concomitant]
     Indication: ANXIETY
     Route: 065
     Dates: start: 20120220
  14. CLOTIAPINE [Concomitant]
     Indication: INSOMNIA
  15. LEVOSULPIRIDE [Concomitant]
     Indication: NAUSEA
  16. KETOPROFEN [Concomitant]
     Indication: ARTHROPATHY
  17. CHLORPROMAZINE [Concomitant]
     Indication: ANXIETY
     Route: 065
     Dates: start: 20120113, end: 20120424
  18. PERICIAZINE [Concomitant]
     Indication: ANXIETY
  19. IBUPROFEN [Concomitant]
     Indication: ARTHROPATHY
  20. RANITIDINE [Concomitant]
     Indication: GASTRITIS
     Route: 065
     Dates: start: 20111112, end: 20111112
  21. RANITIDINE [Concomitant]
     Indication: GASTRITIS
     Route: 065
     Dates: start: 20111112
  22. MIDAZOLAM [Concomitant]
     Indication: GASTRITIS
     Route: 065
     Dates: start: 20111112, end: 20111112
  23. MIDAZOLAM [Concomitant]
     Indication: GASTRITIS
     Route: 065
     Dates: start: 20111112
  24. TRAMADOL [Concomitant]
     Indication: GASTRITIS
     Route: 065
     Dates: start: 20111112, end: 20111112
  25. TRAMADOL [Concomitant]
     Indication: GASTRITIS
     Route: 065
     Dates: start: 20111112
  26. SPASMEX [Concomitant]
     Indication: GASTRITIS
     Route: 065
     Dates: start: 20111112
  27. SPASMEX [Concomitant]
     Indication: GASTRITIS
     Route: 065
     Dates: start: 20111112, end: 20111112
  28. METOCLOPRAMIDE [Concomitant]
     Indication: GASTRITIS
     Route: 065
     Dates: start: 20111112, end: 20111112
  29. METOCLOPRAMIDE [Concomitant]
     Indication: GASTRITIS
     Route: 065
     Dates: start: 20111112

REACTIONS (1)
  - Acute psychosis [Recovered/Resolved]
